FAERS Safety Report 4335996-X (Version None)
Quarter: 2004Q1

REPORT INFORMATION
  Report Type: 
  Country: None (occurrence: None)
  Receive Date: 20040329
  Receipt Date: 20031231
  Transmission Date: 20041129
  Serious: No
  Sender: FDA-Public Use
  Company Number: USA040155656

PATIENT
  Age: 51 Year
  Sex: Female

DRUGS (3)
  1. STRATTERA [Suspect]
     Indication: DEPRESSION
     Dosage: 18 MG/DAY
     Dates: start: 20031001
  2. PROZAC [Concomitant]
  3. WELLBUTRIN [Concomitant]

REACTIONS (5)
  - ARTHRALGIA [None]
  - CHILLS [None]
  - INFLUENZA [None]
  - PYREXIA [None]
  - SKIN DISORDER [None]
